FAERS Safety Report 11569484 (Version 1)
Quarter: 2015Q3

REPORT INFORMATION
  Report Type: Spontaneous
  Country: US (occurrence: None)
  Receive Date: 20150928
  Receipt Date: 20150928
  Transmission Date: 20151125
  Serious: Yes (Other)
  Sender: FDA-Public Use
  Company Number: None

PATIENT
  Age: 44 Year
  Sex: Female
  Weight: 83.92 kg

DRUGS (3)
  1. PHENTERMINE. [Concomitant]
     Active Substance: PHENTERMINE
  2. PHENTERMINE. [Suspect]
     Active Substance: PHENTERMINE
     Indication: WEIGHT CONTROL
     Dosage: TAKEN BY MOUTH
     Dates: start: 20150123, end: 20150925
  3. ZOLOFT [Concomitant]
     Active Substance: SERTRALINE HYDROCHLORIDE

REACTIONS (7)
  - Emotional disorder [None]
  - Loss of consciousness [None]
  - Hallucination [None]
  - Headache [None]
  - Anxiety [None]
  - Alcohol use [None]
  - Divorced [None]

NARRATIVE: CASE EVENT DATE: 20150925
